FAERS Safety Report 25203891 (Version 2)
Quarter: 2025Q2

REPORT INFORMATION
  Report Type: Spontaneous
  Country: US (occurrence: US)
  Receive Date: 20250416
  Receipt Date: 20250425
  Transmission Date: 20250716
  Serious: Yes (Hospitalization)
  Sender: TEVA
  Company Number: US-TEVA-VS-3320081

PATIENT
  Age: 62 Year
  Sex: Male

DRUGS (1)
  1. HYDRALAZINE [Suspect]
     Active Substance: HYDRALAZINE HYDROCHLORIDE
     Indication: Hypertension
     Route: 065

REACTIONS (4)
  - Proteinuria [Unknown]
  - Atelectasis [Unknown]
  - Pulmonary vasculitis [Recovering/Resolving]
  - Haematuria [Unknown]
